FAERS Safety Report 15763126 (Version 13)
Quarter: 2020Q1

REPORT INFORMATION
  Report Type: Spontaneous
  Country: JP (occurrence: JP)
  Receive Date: 20181226
  Receipt Date: 20200325
  Transmission Date: 20200409
  Serious: Yes (Death, Hospitalization, Other)
  Sender: FDA-Public Use
  Company Number: JP-UNITED THERAPEUTICS-UNT-2018-018002

PATIENT
  Age: 64 Year
  Sex: Male
  Weight: 54 kg

DRUGS (27)
  1. REMODULIN [Suspect]
     Active Substance: TREPROSTINIL
     Dosage: 0.0155 ?G/KG, CONTINUING
     Route: 058
  2. CALONAL [Concomitant]
     Active Substance: ACETAMINOPHEN
     Indication: PRODUCT USED FOR UNKNOWN INDICATION
     Dosage: UNK
     Route: 048
     Dates: start: 20181024, end: 20181030
  3. SPIRONOLACTONE. [Concomitant]
     Active Substance: SPIRONOLACTONE
     Indication: PRODUCT USED FOR UNKNOWN INDICATION
     Dosage: UNK
     Route: 048
     Dates: start: 20181025, end: 20181119
  4. REMODULIN [Suspect]
     Active Substance: TREPROSTINIL
     Indication: SCLERODERMA
     Dosage: 0.009 ?G/KG, CONTINUING
     Route: 058
     Dates: start: 20181022, end: 20190123
  5. REMODULIN [Suspect]
     Active Substance: TREPROSTINIL
     Dosage: 0.030 ?G/KG, CONTINUING
     Route: 058
     Dates: start: 20190514, end: 201905
  6. FEBURIC [Concomitant]
     Active Substance: FEBUXOSTAT
     Indication: PRODUCT USED FOR UNKNOWN INDICATION
     Dosage: UNK
     Route: 048
     Dates: start: 20181025, end: 20181119
  7. ASPARA POTASSIUM [Concomitant]
     Active Substance: POTASSIUM ASPARTATE
     Indication: PRODUCT USED FOR UNKNOWN INDICATION
     Dosage: UNK
     Route: 048
     Dates: start: 20181105, end: 20181119
  8. REMODULIN [Suspect]
     Active Substance: TREPROSTINIL
     Dosage: 0.017 ?G/KG, CONTINUING
     Route: 058
     Dates: start: 20190212
  9. REMODULIN [Suspect]
     Active Substance: TREPROSTINIL
     Dosage: UNK, CONTINUING
     Route: 041
     Dates: start: 201905, end: 2019
  10. SAMSCA [Concomitant]
     Active Substance: TOLVAPTAN
     Indication: SCLERODERMA
  11. NEXIUM [Concomitant]
     Active Substance: ESOMEPRAZOLE MAGNESIUM
     Indication: PRODUCT USED FOR UNKNOWN INDICATION
     Dosage: UNK
     Route: 048
     Dates: start: 20181025, end: 20181213
  12. ADEMPAS [Concomitant]
     Active Substance: RIOCIGUAT
     Indication: PULMONARY ARTERIAL HYPERTENSION
  13. OPSUMIT [Concomitant]
     Active Substance: MACITENTAN
     Indication: SCLERODERMA
  14. REVATIO [Concomitant]
     Active Substance: SILDENAFIL CITRATE
     Indication: SCLERODERMA
     Dosage: UNK
     Route: 048
     Dates: start: 201810
  15. MICARDIS [Concomitant]
     Active Substance: TELMISARTAN
     Indication: PRODUCT USED FOR UNKNOWN INDICATION
     Dosage: UNK
     Route: 048
     Dates: start: 20181025, end: 20181029
  16. REMODULIN [Suspect]
     Active Substance: TREPROSTINIL
     Indication: PULMONARY ARTERIAL HYPERTENSION
     Dosage: 0.006 ?G/KG, CONTINUING
     Route: 041
  17. ADEMPAS [Concomitant]
     Active Substance: RIOCIGUAT
     Indication: SCLERODERMA
     Dosage: UNK
     Route: 048
     Dates: start: 20181103, end: 20181213
  18. REMODULIN [Suspect]
     Active Substance: TREPROSTINIL
     Indication: PULMONARY ARTERIAL HYPERTENSION
     Dosage: 0.05 ?G/KG, CONTINUING
     Route: 058
     Dates: start: 2018
  19. REMODULIN [Suspect]
     Active Substance: TREPROSTINIL
     Indication: SCLERODERMA
     Dosage: 0.003 ?G/KG, CONTINUING
     Route: 041
     Dates: start: 20181018, end: 20181022
  20. SAMSCA [Concomitant]
     Active Substance: TOLVAPTAN
     Indication: PULMONARY ARTERIAL HYPERTENSION
     Dosage: UNK
     Route: 048
     Dates: start: 201810
  21. REMODULIN [Suspect]
     Active Substance: TREPROSTINIL
     Dosage: 0.010 ?G/KG, CONTINUING
     Route: 058
     Dates: start: 20190204, end: 201905
  22. REMODULIN [Suspect]
     Active Substance: TREPROSTINIL
     Dosage: 0.050 ?G/KG, CONTINUING
     Route: 041
     Dates: start: 2019, end: 201908
  23. OPSUMIT [Concomitant]
     Active Substance: MACITENTAN
     Indication: PULMONARY ARTERIAL HYPERTENSION
     Dosage: UNK
     Route: 048
     Dates: start: 20181025
  24. REMODULIN [Suspect]
     Active Substance: TREPROSTINIL
     Dosage: 0.01 ?G/KG, CONTINUING
     Route: 041
  25. REMODULIN [Suspect]
     Active Substance: TREPROSTINIL
     Dosage: UNK, CONTINUING
     Route: 041
     Dates: start: 20190124, end: 20190203
  26. REVATIO [Concomitant]
     Active Substance: SILDENAFIL CITRATE
     Indication: PULMONARY ARTERIAL HYPERTENSION
  27. FUROSEMIDE. [Concomitant]
     Active Substance: FUROSEMIDE
     Indication: PRODUCT USED FOR UNKNOWN INDICATION
     Dosage: UNK
     Route: 048
     Dates: start: 20181025, end: 20181129

REACTIONS (18)
  - Subcutaneous drug absorption impaired [Unknown]
  - Vasculitis [Unknown]
  - Infusion site infection [Unknown]
  - Diarrhoea [Unknown]
  - Scleroderma [Fatal]
  - Condition aggravated [Fatal]
  - Pyrexia [Unknown]
  - Blood pressure decreased [Unknown]
  - Dizziness [Unknown]
  - Dehydration [Unknown]
  - Septic shock [Unknown]
  - Right ventricular failure [Fatal]
  - Cerebral infarction [Unknown]
  - Sepsis [Unknown]
  - Oxygen saturation decreased [Recovered/Resolved]
  - Brain natriuretic peptide increased [Unknown]
  - Nausea [Unknown]
  - Infusion site pain [Unknown]

NARRATIVE: CASE EVENT DATE: 2018
